FAERS Safety Report 12410568 (Version 1)
Quarter: 2016Q2

REPORT INFORMATION
  Report Type: Spontaneous
  Country: US (occurrence: None)
  Receive Date: 20160526
  Receipt Date: 20160526
  Transmission Date: 20160815
  Serious: Yes (Other)
  Sender: FDA-Public Use
  Company Number: None

PATIENT
  Age: 26 Year
  Sex: Male
  Weight: 54.43 kg

DRUGS (4)
  1. ABILIFY [Suspect]
     Active Substance: ARIPIPRAZOLE
     Indication: ANXIETY
     Route: 030
     Dates: start: 20150301, end: 20160106
  2. ABILIFY [Suspect]
     Active Substance: ARIPIPRAZOLE
     Indication: DEPRESSION
     Route: 030
     Dates: start: 20150301, end: 20160106
  3. ABILIFY [Suspect]
     Active Substance: ARIPIPRAZOLE
     Indication: POST-TRAUMATIC STRESS DISORDER
     Route: 030
     Dates: start: 20150301, end: 20160106
  4. ABILIFY [Suspect]
     Active Substance: ARIPIPRAZOLE
     Indication: SCHIZOPHRENIA
     Route: 030
     Dates: start: 20150301, end: 20160106

REACTIONS (10)
  - Initial insomnia [None]
  - Tremor [None]
  - Migraine [None]
  - Dyskinesia [None]
  - Asthenia [None]
  - Decreased appetite [None]
  - Pyrexia [None]
  - Vomiting [None]
  - Pain [None]
  - Hyperhidrosis [None]

NARRATIVE: CASE EVENT DATE: 20160106
